FAERS Safety Report 8880903 (Version 2)
Quarter: 2014Q2

REPORT INFORMATION
  Report Type: Spontaneous
  Country: US (occurrence: US)
  Receive Date: 20121101
  Receipt Date: 20140430
  Transmission Date: 20141212
  Serious: Yes (Hospitalization, Other)
  Sender: FDA-Public Use
  Company Number: US-PFIZER INC-2012214921

PATIENT
  Age: 20 Year
  Sex: Male

DRUGS (3)
  1. DOXEPIN HCL [Suspect]
     Dosage: MORE THAN 3 G
  2. LEVETIRACETAM [Suspect]
     Dosage: UNK
  3. CITALOPRAM [Suspect]
     Dosage: 1.2 G

REACTIONS (5)
  - Overdose [Recovered/Resolved]
  - Unresponsive to stimuli [Recovered/Resolved]
  - Generalised tonic-clonic seizure [Recovered/Resolved]
  - Cardiac arrest [Recovered/Resolved]
  - Electrocardiogram QRS complex prolonged [Recovered/Resolved]
